FAERS Safety Report 5834139-0 (Version None)
Quarter: 2008Q3

REPORT INFORMATION
  Report Type: 
  Country: None (occurrence: None)
  Receive Date: 20080801
  Receipt Date: 20080718
  Transmission Date: 20090109
  Serious: Yes (Hospitalization)
  Sender: FDA-Public Use
  Company Number: 2008US019N-2

PATIENT
  Sex: Female

DRUGS (1)
  1. SALONPAS-HOT       (CAPSICUM EXTRACT : 0.025% AS CAPSAICIN) [Suspect]
     Indication: PAIN IN EXTREMITY
     Dosage: 2DF TRANSDERMAL
     Route: 062
     Dates: start: 20080610

REACTIONS (3)
  - APPLICATION SITE VESICLES [None]
  - BURN INFECTION [None]
  - CAUSTIC INJURY [None]
